FAERS Safety Report 8969472 (Version 1)
Quarter: 2012Q4

REPORT INFORMATION
  Report Type: 
  Country: US (occurrence: US)
  Receive Date: 20121218
  Receipt Date: 20121218
  Transmission Date: 20130627
  Serious: Yes (Other)
  Sender: FDA-Public Use
  Company Number: US-ELI_LILLY_AND_COMPANY-US201212002965

PATIENT
  Sex: Female

DRUGS (2)
  1. CYMBALTA [Suspect]
     Indication: MAJOR DEPRESSION
     Dosage: 30 mg, qd
  2. CYMBALTA [Suspect]
     Dosage: 60 mg, qd
     Dates: end: 201212

REACTIONS (3)
  - Blister [Unknown]
  - Rash [Unknown]
  - Urticaria [Unknown]
